FAERS Safety Report 5259171-X (Version None)
Quarter: 2007Q1

REPORT INFORMATION
  Report Type: 
  Country: None (occurrence: None)
  Receive Date: 20070308
  Receipt Date: 20070222
  Transmission Date: 20070707
  Serious: Yes (Life-Threatening, Hospitalization)
  Sender: FDA-Public Use
  Company Number: HR-ELI_LILLY_AND_COMPANY-HR200702004487

PATIENT
  Age: 56 Year
  Sex: Female

DRUGS (2)
  1. EVISTA [Suspect]
     Indication: OSTEOPOROSIS
     Dosage: 60 MG, DAILY (1/D)
     Route: 048
     Dates: start: 20041201
  2. ACTIVELLE [Interacting]
     Indication: MENOPAUSE
     Dosage: UNK, UNKNOWN
     Dates: start: 20041201, end: 20061001

REACTIONS (2)
  - DRUG INTERACTION [None]
  - ENDOMETRIAL CANCER [None]
